FAERS Safety Report 4694576-7 (Version None)
Quarter: 2005Q2

REPORT INFORMATION
  Report Type: 
  Country: None (occurrence: None)
  Receive Date: 20050614
  Receipt Date: 20050331
  Transmission Date: 20051028
  Serious: No
  Sender: FDA-Public Use
  Company Number: USA050394582

PATIENT
  Sex: Male

DRUGS (5)
  1. CIALIS [Suspect]
     Dosage: 10 MG/1 AS NEEDED
  2. PREDNISONE ACETATE [Concomitant]
  3. METOPROLOL [Concomitant]
  4. BISOPROLOL [Concomitant]
  5. VIAGRA(SILDENFIL CITRATE) [Concomitant]

REACTIONS (1)
  - THERAPEUTIC RESPONSE DECREASED [None]
